FAERS Safety Report 7532413-3 (Version None)
Quarter: 2011Q2

REPORT INFORMATION
  Report Type: 
  Country: None (occurrence: None)
  Receive Date: 20110601
  Receipt Date: 20110517
  Transmission Date: 20111010
  Serious: Yes (Other)
  Sender: FDA-Public Use
  Company Number: AUR-APL-2011-01724

PATIENT
  Age: 74 Year
  Sex: Female
  Weight: 70.3075 kg

DRUGS (2)
  1. ALENDRONATE SODIUM [Suspect]
     Indication: ARTHROPATHY
     Dosage: 70MG - WEEKLY - ORAL
     Route: 048
     Dates: start: 20101001, end: 20110511
  2. MULTI-VITAMIN [Concomitant]

REACTIONS (6)
  - MOUTH HAEMORRHAGE [None]
  - GASTROENTERITIS SALMONELLA [None]
  - BONE DENSITY DECREASED [None]
  - DYSGEUSIA [None]
  - SALMONELLOSIS [None]
  - WEIGHT DECREASED [None]
